FAERS Safety Report 8151178 (Version 10)
Quarter: 2016Q4

REPORT INFORMATION
  Report Type: Spontaneous
  Country: US (occurrence: US)
  Receive Date: 20110922
  Receipt Date: 20161108
  Transmission Date: 20170207
  Serious: Yes (Hospitalization, Disabling, Other)
  Sender: FDA-Public Use
  Company Number: US-009507513-1109USA02130

PATIENT
  Sex: Female
  Weight: 83.46 kg

DRUGS (12)
  1. ALENDRONATE SODIUM. [Suspect]
     Active Substance: ALENDRONATE SODIUM
     Indication: OSTEOPENIA
     Dosage: 70 MG, UNK
     Route: 048
     Dates: start: 20080714, end: 20091125
  2. VITAMIN C [Concomitant]
     Active Substance: ASCORBIC ACID
     Dosage: 1000 MG, QD
  3. ESTRACE [Concomitant]
     Active Substance: ESTRADIOL
     Indication: MENOPAUSE
     Dates: start: 1996
  4. FOSAMAX [Suspect]
     Active Substance: ALENDRONATE SODIUM
     Indication: OSTEOPENIA
     Dosage: 70 MG, UNK
     Route: 048
     Dates: start: 1998, end: 20100115
  5. CALCIUM (UNSPECIFIED) [Concomitant]
     Active Substance: CALCIUM
     Dosage: 1200 MG, QD
     Route: 048
  6. FOSAMAX [Suspect]
     Active Substance: ALENDRONATE SODIUM
     Dosage: 35 MG, UNK
     Route: 048
     Dates: start: 20050102, end: 20050613
  7. ALENDRONATE SODIUM. [Suspect]
     Active Substance: ALENDRONATE SODIUM
     Indication: OSTEOPOROSIS
  8. ALENDRONATE SODIUM. [Suspect]
     Active Substance: ALENDRONATE SODIUM
     Indication: OSTEOPOROSIS
     Dosage: 70 MG, UNK
     Route: 048
  9. BENICAR [Concomitant]
     Active Substance: OLMESARTAN MEDOXOMIL
     Dates: start: 1998
  10. FOSAMAX [Suspect]
     Active Substance: ALENDRONATE SODIUM
     Indication: OSTEOPOROSIS
     Dosage: 40 MG, QW
     Route: 048
     Dates: start: 20020116
  11. FOSAMAX [Suspect]
     Active Substance: ALENDRONATE SODIUM
     Dosage: 5 MG, QD
     Route: 048
     Dates: start: 20020213
  12. MULTIVITE [Concomitant]
     Active Substance: VITAMINS
     Route: 048

REACTIONS (55)
  - Femur fracture [Recovered/Resolved]
  - Deafness [Unknown]
  - Renal artery stenosis [Not Recovered/Not Resolved]
  - Fall [Unknown]
  - Colon adenoma [Unknown]
  - Onychomycosis [Unknown]
  - Chest pain [Recovered/Resolved]
  - Insomnia [Unknown]
  - Asthma [Unknown]
  - Conjunctivitis allergic [Unknown]
  - Bronchitis [Unknown]
  - Chromaturia [Unknown]
  - Pancreatitis [Unknown]
  - Anxiety [Unknown]
  - Hypersensitivity [Unknown]
  - Ovarian cyst [Unknown]
  - Gastric polyps [Unknown]
  - Adverse drug reaction [Unknown]
  - Eczema [Unknown]
  - Peripheral venous disease [Unknown]
  - Bursitis [Unknown]
  - Fracture nonunion [Unknown]
  - Cardiac disorder [Unknown]
  - Dyslipidaemia [Unknown]
  - Decreased appetite [Unknown]
  - Blood pressure increased [Not Recovered/Not Resolved]
  - Road traffic accident [Unknown]
  - Keratitis [Unknown]
  - Depression [Unknown]
  - Low turnover osteopathy [Unknown]
  - Fatigue [Unknown]
  - Vitamin D deficiency [Unknown]
  - Type 2 diabetes mellitus [Unknown]
  - Inappropriate schedule of drug administration [Unknown]
  - Fall [Unknown]
  - Breast cyst [Unknown]
  - Rosacea [Unknown]
  - Haemorrhoids [Unknown]
  - Meralgia paraesthetica [Unknown]
  - Intervertebral disc disorder [Unknown]
  - Conjunctival haemorrhage [Unknown]
  - Nausea [Unknown]
  - Rhinitis allergic [Unknown]
  - Hypercalcaemia [Unknown]
  - Oedema peripheral [Unknown]
  - Muscle spasms [Unknown]
  - Bronchial hyperreactivity [Unknown]
  - Corneal abrasion [Unknown]
  - Gallbladder disorder [Unknown]
  - Blood cholesterol increased [Unknown]
  - Hyperlipidaemia [Unknown]
  - Hormone level abnormal [Unknown]
  - Fibrocystic breast disease [Unknown]
  - Varicose vein [Unknown]
  - Proteinuria [Unknown]

NARRATIVE: CASE EVENT DATE: 1999
